FAERS Safety Report 18686119 (Version 2)
Quarter: 2021Q1

REPORT INFORMATION
  Report Type: Other
  Country: JP (occurrence: JP)
  Receive Date: 20201231
  Receipt Date: 20210119
  Transmission Date: 20210419
  Serious: Yes (Other)
  Sender: FDA-Public Use
  Company Number: JP-ROCHE-2722633

PATIENT
  Age: 74 Year
  Sex: Male
  Weight: 48 kg

DRUGS (19)
  1. MEYLON [Concomitant]
     Active Substance: SODIUM BICARBONATE
  2. MUCOSTA [Concomitant]
     Active Substance: REBAMIPIDE
  3. RINDERON [Concomitant]
  4. TAKEPRON [Concomitant]
     Active Substance: LANSOPRAZOLE
  5. PROCARBAZINE HYDROCHLORIDE [Suspect]
     Active Substance: PROCARBAZINE HYDROCHLORIDE
     Indication: CENTRAL NERVOUS SYSTEM LYMPHOMA
     Route: 065
  6. GLYCERIN F [Concomitant]
  7. MIYA?BM [Concomitant]
     Active Substance: CLOSTRIDIUM BUTYRICUM SPORES STRAIN M-55
  8. VICCLOX [Concomitant]
     Active Substance: ACYCLOVIR SODIUM
  9. VINCRISTINE SULFATE. [Suspect]
     Active Substance: VINCRISTINE SULFATE
     Indication: CENTRAL NERVOUS SYSTEM LYMPHOMA
     Route: 042
  10. LEUCOVORIN. [Concomitant]
     Active Substance: LEUCOVORIN
  11. MAGLAX [Concomitant]
     Active Substance: MAGNESIUM OXIDE
  12. GASTER [Concomitant]
     Active Substance: FAMOTIDINE
  13. RITUXIMAB. [Suspect]
     Active Substance: RITUXIMAB
     Indication: CENTRAL NERVOUS SYSTEM LYMPHOMA
     Route: 041
     Dates: start: 20150217
  14. METHOTREXATE. [Suspect]
     Active Substance: METHOTREXATE
     Indication: CENTRAL NERVOUS SYSTEM LYMPHOMA
     Route: 042
  15. DIAMOX SEQUELS [Concomitant]
     Active Substance: ACETAZOLAMIDE
  16. BAKTAR [Concomitant]
     Active Substance: SULFAMETHOXAZOLE\TRIMETHOPRIM
  17. ACETAMINOPHEN. [Concomitant]
     Active Substance: ACETAMINOPHEN
  18. RESTAMIN [Concomitant]
     Active Substance: DIPHENHYDRAMINE
  19. MYSLEE [Concomitant]
     Active Substance: ZOLPIDEM TARTRATE

REACTIONS (7)
  - Neutrophil count decreased [Recovered/Resolved]
  - White blood cell count decreased [Recovered/Resolved]
  - Lymphocyte count decreased [Not Recovered/Not Resolved]
  - Hyponatraemia [Recovered/Resolved]
  - Anaemia [Not Recovered/Not Resolved]
  - Infection [Recovered/Resolved]
  - Platelet count decreased [Recovered/Resolved]

NARRATIVE: CASE EVENT DATE: 20150218
